FAERS Safety Report 10057568 (Version 2)
Quarter: 2014Q2

REPORT INFORMATION
  Report Type: Spontaneous
  Country: US (occurrence: US)
  Receive Date: 20140404
  Receipt Date: 20140425
  Transmission Date: 20141212
  Serious: No
  Sender: FDA-Public Use
  Company Number: PHEH2014US006338

PATIENT
  Sex: Male

DRUGS (2)
  1. CETIRIZINE [Suspect]
     Indication: HYPERSENSITIVITY
  2. TASIGNA [Concomitant]
     Dosage: UNK UKN, UNK

REACTIONS (1)
  - Drug ineffective [Unknown]
